FAERS Safety Report 6613419-5 (Version None)
Quarter: 2010Q1

REPORT INFORMATION
  Report Type: 
  Country: None (occurrence: None)
  Receive Date: 20100224
  Receipt Date: 20090706
  Transmission Date: 20100710
  Serious: Yes (Other)
  Sender: FDA-Public Use
  Company Number: WAES 0907USA00862

PATIENT
  Sex: Female

DRUGS (2)
  1. ZOCOR [Suspect]
     Dosage: PO
     Route: 048
  2. CELEBREX [Suspect]

REACTIONS (1)
  - HEPATIC ENZYME INCREASED [None]
